FAERS Safety Report 23218694 (Version 1)
Quarter: 2023Q4

REPORT INFORMATION
  Report Type: Spontaneous
  Country: US (occurrence: None)
  Receive Date: 20231122
  Receipt Date: 20231122
  Transmission Date: 20240109
  Serious: Yes (unspecified)
  Sender: FDA-Public Use
  Company Number: None

PATIENT
  Age: 66 Year
  Sex: Female

DRUGS (11)
  1. LEQVIO [Suspect]
     Active Substance: INCLISIRAN SODIUM
     Indication: Hyperlipidaemia
     Dosage: FREQUENCY : ONCE;?
     Route: 058
     Dates: start: 20230925
  2. AMLODIPINE [Concomitant]
     Active Substance: AMLODIPINE BESYLATE
  3. ESTRADIOL [Concomitant]
     Active Substance: ESTRADIOL
  4. FEXOFENADINE [Concomitant]
     Active Substance: FEXOFENADINE HYDROCHLORIDE
  5. LOSARTAN [Concomitant]
     Active Substance: LOSARTAN
  6. PAROXETINE [Concomitant]
     Active Substance: PAROXETINE
  7. SOTALOL [Concomitant]
     Active Substance: SOTALOL
  8. XARELTO [Concomitant]
     Active Substance: RIVAROXABAN
  9. IBUPROFEN [Concomitant]
     Active Substance: IBUPROFEN
  10. TYLENOL [Concomitant]
     Active Substance: ACETAMINOPHEN
  11. HERBAL NOS [Concomitant]
     Active Substance: HERBALS

REACTIONS (4)
  - Gouty arthritis [None]
  - Bronchitis [None]
  - Arthralgia [None]
  - Blood uric acid increased [None]

NARRATIVE: CASE EVENT DATE: 20231009
